FAERS Safety Report 14392613 (Version 4)
Quarter: 2018Q3

REPORT INFORMATION
  Report Type: Report from Study
  Country: FR (occurrence: FR)
  Receive Date: 20180116
  Receipt Date: 20180817
  Transmission Date: 20181010
  Serious: Yes (Hospitalization)
  Sender: FDA-Public Use
  Company Number: FR-ASTRAZENECA-2018SE02656

PATIENT
  Age: 68 Year
  Sex: Female

DRUGS (30)
  1. HYDROXYZINE [Concomitant]
     Active Substance: HYDROXYZINE HYDROCHLORIDE
     Indication: ANXIETY
     Route: 048
     Dates: start: 20171220, end: 20171228
  2. SODIUM ALGINATE [Concomitant]
     Active Substance: SODIUM ALGINATE
     Indication: ABDOMINAL PAIN UPPER
     Dosage: 1 SACHET, AS NEEDED
     Route: 048
     Dates: start: 20171226, end: 20180104
  3. BENDAMUSTINE [Suspect]
     Active Substance: BENDAMUSTINE
     Indication: MANTLE CELL LYMPHOMA
     Dosage: 145.0MG ONCE/SINGLE ADMINISTRATION
     Route: 042
     Dates: start: 20180104, end: 20180104
  4. RITUXIMAB. [Suspect]
     Active Substance: RITUXIMAB
     Indication: MANTLE CELL LYMPHOMA
     Dosage: 610.0MG ONCE/SINGLE ADMINISTRATION
     Route: 042
     Dates: start: 20180103, end: 20180103
  5. BETAMETHASONE. [Concomitant]
     Active Substance: BETAMETHASONE
     Indication: TOXIC SKIN ERUPTION
     Dosage: 1 APPLICATION, ONCE DAILY
     Route: 062
     Dates: start: 20171220
  6. BISEPTINE [Concomitant]
     Active Substance: BENZALKONIUM CHLORIDE\BENZYL ALCOHOL\CHLORHEXIDINE
     Indication: TOXIC SKIN ERUPTION
     Dosage: 1 APPLICATION, ONCE DAILY
     Route: 062
     Dates: start: 20171222
  7. DERMOVAL [Concomitant]
     Indication: TOXIC SKIN ERUPTION
     Dosage: 1 APPLICATION, AS NEEDED
     Route: 062
     Dates: start: 20171222, end: 20171228
  8. DEXERYL (CHLORPHENAMINE MALEATE\DEXTROMETHORPHAN HYDROBROMIDE\GUAIFENESIN\PHENYLEPHRINE HYDROCHLORIDE) [Concomitant]
     Active Substance: CHLORPHENIRAMINE MALEATE\DEXTROMETHORPHAN HYDROBROMIDE\GUAIFENESIN\PHENYLEPHRINE HYDROCHLORIDE
     Indication: TOXIC SKIN ERUPTION
     Dosage: 1 APPLICATION, AS NEEDED
     Route: 062
     Dates: start: 20171222, end: 20171228
  9. BENDAMUSTINE [Suspect]
     Active Substance: BENDAMUSTINE
     Indication: MANTLE CELL LYMPHOMA
     Dosage: 145.0MG ONCE/SINGLE ADMINISTRATION
     Route: 042
     Dates: start: 20171206, end: 20171206
  10. BENDAMUSTINE [Suspect]
     Active Substance: BENDAMUSTINE
     Indication: MANTLE CELL LYMPHOMA
     Dosage: 145.0MG ONCE/SINGLE ADMINISTRATION
     Route: 042
     Dates: start: 20171207, end: 20171207
  11. AMOXICILLINE [Concomitant]
     Active Substance: AMOXICILLIN
     Indication: PROPHYLAXIS
     Route: 048
     Dates: start: 20171208
  12. CALCIUM FOLINATE [Concomitant]
     Active Substance: LEUCOVORIN CALCIUM
     Indication: PROPHYLAXIS
     Route: 048
     Dates: start: 20171210
  13. AMLODIPINE [Concomitant]
     Active Substance: AMLODIPINE BESYLATE
     Indication: PAIN
     Route: 048
     Dates: start: 20171208
  14. CLOBETASOL [Concomitant]
     Active Substance: CLOBETASOL
     Indication: TOXIC SKIN ERUPTION
     Dosage: 2 APPLICATION, ONCE DAILY
     Route: 062
     Dates: start: 20171222
  15. TINZAPARIN [Concomitant]
     Active Substance: TINZAPARIN
     Indication: PHLEBITIS
     Route: 042
     Dates: start: 20171226, end: 20171228
  16. FOSAVANCE [Concomitant]
     Active Substance: ALENDRONATE SODIUM\CHOLECALCIFEROL
     Indication: CARPAL TUNNEL SYNDROME
     Route: 048
  17. CETIRIZINE [Concomitant]
     Active Substance: CETIRIZINE HYDROCHLORIDE
     Indication: TOXIC SKIN ERUPTION
     Route: 048
     Dates: start: 20180106
  18. BENDAMUSTINE [Suspect]
     Active Substance: BENDAMUSTINE
     Indication: MANTLE CELL LYMPHOMA
     Dosage: 145.0MG ONCE/SINGLE ADMINISTRATION
     Route: 042
     Dates: start: 20180105, end: 20180105
  19. METOCLOPRAMIDE. [Concomitant]
     Active Substance: METOCLOPRAMIDE
     Indication: PROPHYLAXIS
     Route: 048
     Dates: start: 20180104, end: 20180105
  20. RITUXIMAB. [Suspect]
     Active Substance: RITUXIMAB
     Indication: MANTLE CELL LYMPHOMA
     Dosage: 610.0MG ONCE/SINGLE ADMINISTRATION
     Route: 042
     Dates: start: 20171206, end: 20171206
  21. ACETYLSALICYLATE LYSINE [Concomitant]
     Active Substance: ASPIRIN DL-LYSINE
     Indication: MIGRAINE
     Route: 048
  22. OXYBUTINE [Concomitant]
     Indication: CARPAL TUNNEL SYNDROME
     Route: 048
  23. PREDNISONE. [Concomitant]
     Active Substance: PREDNISONE
     Indication: RAYNAUD^S PHENOMENON
     Route: 048
     Dates: start: 201307
  24. ALLOPURINOL. [Concomitant]
     Active Substance: ALLOPURINOL
     Indication: PROPHYLACTIC CHEMOTHERAPY
     Route: 048
     Dates: start: 20171206
  25. CETIRIZINE [Concomitant]
     Active Substance: CETIRIZINE HYDROCHLORIDE
     Indication: TOXIC SKIN ERUPTION
     Route: 048
     Dates: start: 20171222, end: 20171228
  26. ACALABRUTINIB. [Suspect]
     Active Substance: ACALABRUTINIB
     Indication: MANTLE CELL LYMPHOMA
     Route: 048
     Dates: start: 20171206, end: 20171220
  27. ACALABRUTINIB. [Suspect]
     Active Substance: ACALABRUTINIB
     Indication: MANTLE CELL LYMPHOMA
     Route: 048
     Dates: start: 20180105, end: 20180105
  28. TRAMADOL. [Concomitant]
     Active Substance: TRAMADOL
     Indication: TOXIC SKIN ERUPTION
     Route: 048
     Dates: start: 20171221
  29. BETNEVAL [Concomitant]
     Active Substance: BETAMETHASONE VALERATE
     Indication: TOXIC SKIN ERUPTION
     Dosage: 1 APPLICATION, AS NEEDED
     Route: 062
     Dates: start: 20171222, end: 20171228
  30. DOMPERIDONE [Concomitant]
     Active Substance: DOMPERIDONE
     Indication: VOMITING
     Route: 048
     Dates: start: 20171226, end: 20171226

REACTIONS (1)
  - Face oedema [Recovered/Resolved]

NARRATIVE: CASE EVENT DATE: 20180105
